FAERS Safety Report 8889305 (Version 1)
Quarter: 2012Q4

REPORT INFORMATION
  Report Type: 
  Country: DE (occurrence: DE)
  Receive Date: 20121106
  Receipt Date: 20121106
  Transmission Date: 20130627
  Serious: Yes (Other)
  Sender: FDA-Public Use
  Company Number: DE-ASTRAZENECA-2012SE82055

PATIENT
  Age: 88 Year
  Sex: Male

DRUGS (3)
  1. BRILIQUE [Suspect]
     Route: 048
  2. EPTIFIBATIDE [Suspect]
     Route: 065
  3. ASS [Concomitant]

REACTIONS (1)
  - Thrombocytopenia [Recovered/Resolved]
